FAERS Safety Report 21252705 (Version 2)
Quarter: 2022Q3

REPORT INFORMATION
  Report Type: Spontaneous
  Country: US (occurrence: US)
  Receive Date: 20220825
  Receipt Date: 20220906
  Transmission Date: 20221027
  Serious: Yes (Hospitalization)
  Sender: FDA-Public Use
  Company Number: US-TEVA-2022-US-2066495

PATIENT
  Age: 23 Year
  Sex: Female

DRUGS (5)
  1. PERPHENAZINE [Suspect]
     Active Substance: PERPHENAZINE
     Indication: Bipolar disorder
     Dosage: 16 MILLIGRAM DAILY;
     Route: 065
  2. PRAZOSIN [Concomitant]
     Active Substance: PRAZOSIN
     Indication: Bipolar disorder
     Dosage: 2 MILLIGRAM DAILY;
     Route: 065
  3. FLUOXETINE [Concomitant]
     Active Substance: FLUOXETINE HYDROCHLORIDE
     Indication: Bipolar disorder
     Dosage: 60 MILLIGRAM DAILY;
     Route: 065
  4. DIVALPROEX SODIUM [Concomitant]
     Active Substance: DIVALPROEX SODIUM
     Indication: Bipolar disorder
     Dosage: 1000 MILLIGRAM DAILY;
     Route: 065
  5. QUETIAPINE [Concomitant]
     Active Substance: QUETIAPINE
     Indication: Bipolar disorder
     Dosage: AT BEDTIME, 300 MG
     Route: 065

REACTIONS (2)
  - Extrapyramidal disorder [Recovered/Resolved]
  - Hyperprolactinaemia [Recovered/Resolved]
